FAERS Safety Report 25339640 (Version 2)
Quarter: 2025Q2

REPORT INFORMATION
  Report Type: Spontaneous
  Country: US (occurrence: US)
  Receive Date: 20250521
  Receipt Date: 20250527
  Transmission Date: 20250717
  Serious: Yes (Life-Threatening, Hospitalization, Disabling)
  Sender: MERCK SHARP & DOHME LLC
  Company Number: US-009507513-2286168

PATIENT
  Age: 73 Year
  Sex: Female

DRUGS (15)
  1. WINREVAIR [Suspect]
     Active Substance: SOTATERCEPT-CSRK
     Dates: start: 20241114
  2. WINREVAIR [Suspect]
     Active Substance: SOTATERCEPT-CSRK
     Dates: start: 202505
  3. WINREVAIR [Suspect]
     Active Substance: SOTATERCEPT-CSRK
  4. WINREVAIR [Suspect]
     Active Substance: SOTATERCEPT-CSRK
  5. IV Veletri [Concomitant]
     Indication: Heritable pulmonary arterial hypertension
     Route: 042
     Dates: start: 2000
  6. BOSENTAN [Concomitant]
     Active Substance: BOSENTAN
     Indication: Heritable pulmonary arterial hypertension
     Dates: start: 2012
  7. OPSUMIT [Concomitant]
     Active Substance: MACITENTAN
  8. APIXABAN [Concomitant]
     Active Substance: APIXABAN
  9. CETIRIZINE [Concomitant]
     Active Substance: CETIRIZINE HYDROCHLORIDE
  10. FLUTICASONE [Concomitant]
     Active Substance: FLUTICASONE
  11. VITAMIN B12 [Concomitant]
     Active Substance: CYANOCOBALAMIN
  12. VITAMIN D3 [Concomitant]
     Active Substance: CHOLECALCIFEROL
  13. VITAMINS [Concomitant]
     Active Substance: VITAMINS
  14. MELATONIN [Concomitant]
     Active Substance: MELATONIN
  15. OXYGEN [Concomitant]
     Active Substance: OXYGEN

REACTIONS (1)
  - Pericardial effusion [Recovering/Resolving]

NARRATIVE: CASE EVENT DATE: 20241230
